FAERS Safety Report 7284246-3 (Version None)
Quarter: 2011Q1

REPORT INFORMATION
  Report Type: 
  Country: None (occurrence: None)
  Receive Date: 20110209
  Receipt Date: 20110204
  Transmission Date: 20110831
  Serious: Yes (Other)
  Sender: FDA-Public Use
  Company Number: CA-US-EMD SERONO, INC.-7016140

PATIENT
  Sex: Female

DRUGS (5)
  1. REBIF [Suspect]
     Indication: RELAPSING-REMITTING MULTIPLE SCLEROSIS
     Dates: start: 20100823
  2. REBIF [Suspect]
  3. PANTOLOC [Concomitant]
  4. ACETAMINOPHEN [Concomitant]
     Indication: PROPHYLAXIS
  5. MAALOX [Concomitant]

REACTIONS (17)
  - PANCREATITIS [None]
  - INJECTION SITE PAIN [None]
  - INJECTION SITE PRURITUS [None]
  - DECREASED APPETITE [None]
  - ABDOMINAL PAIN [None]
  - PAIN [None]
  - NAUSEA [None]
  - FATIGUE [None]
  - INJECTION SITE INFLAMMATION [None]
  - INJECTION SITE ERYTHEMA [None]
  - HEPATIC ENZYME INCREASED [None]
  - INSOMNIA [None]
  - WEIGHT DECREASED [None]
  - GASTRITIS [None]
  - INJECTION SITE WARMTH [None]
  - INJECTION SITE RASH [None]
  - DYSPEPSIA [None]
